FAERS Safety Report 7639583-7 (Version None)
Quarter: 2011Q3

REPORT INFORMATION
  Report Type: 
  Country: None (occurrence: None)
  Receive Date: 20110727
  Receipt Date: 20110719
  Transmission Date: 20111222
  Serious: Yes (Other)
  Sender: FDA-Public Use
  Company Number: NL-ABBOTT-11P-114-0841519-00

PATIENT
  Sex: Female
  Weight: 95 kg

DRUGS (16)
  1. KETAMINE HCL [Concomitant]
     Indication: NECK PAIN
     Route: 042
     Dates: start: 20100901
  2. LEUPROLIDE ACETATE [Suspect]
     Indication: ENDOMETRIOSIS
     Route: 058
     Dates: start: 20100929, end: 20110601
  3. PIROXICAM [Concomitant]
     Indication: ARTHRITIS
     Dosage: 1-2 CAPSULES ONCE DAILY
     Route: 048
     Dates: start: 20060101
  4. METOPROLOL SUCCINATE [Concomitant]
     Indication: PRODUCT USED FOR UNKNOWN INDICATION
     Route: 048
  5. DESLORATADINE [Concomitant]
     Indication: SEASONAL ALLERGY
     Route: 048
  6. TRIMETHOPRIM [Concomitant]
     Indication: HERNIA
     Route: 030
     Dates: start: 20100901
  7. AMITRIPTYLINE HCL [Concomitant]
     Indication: ARTHRITIS
     Route: 048
  8. LYRICA [Concomitant]
     Indication: MUSCULOSKELETAL PAIN
     Route: 048
     Dates: start: 20090101
  9. LEUPROLIDE ACETATE [Suspect]
     Indication: ENDOMETRIOSIS
     Route: 058
     Dates: start: 20110718
  10. AMITRIPTYLINE HCL [Concomitant]
     Indication: FIBROMYALGIA
  11. DIAZEPAM [Concomitant]
     Indication: ARTHRITIS
     Route: 048
  12. DIAZEPAM [Concomitant]
     Indication: FIBROMYALGIA
  13. PIROXICAM [Concomitant]
     Indication: FIBROMYALGIA
  14. KETAMINE HCL [Concomitant]
     Indication: MUSCULOSKELETAL PAIN
  15. LEUPROLIDE ACETATE [Suspect]
     Route: 058
     Dates: start: 20090701, end: 20090901
  16. MEBEVERINE [Concomitant]
     Indication: GASTROINTESTINAL PAIN
     Route: 048
     Dates: start: 19970101

REACTIONS (3)
  - MOOD SWINGS [None]
  - HOT FLUSH [None]
  - OOPHORECTOMY [None]
